FAERS Safety Report 5534347-2 (Version None)
Quarter: 2007Q4

REPORT INFORMATION
  Report Type: 
  Country: None (occurrence: None)
  Receive Date: 20071130
  Receipt Date: 20071113
  Transmission Date: 20080405
  Serious: Yes (Other)
  Sender: FDA-Public Use
  Company Number: ADE2007-0043

PATIENT
  Age: 55 Year
  Sex: Female

DRUGS (10)
  1. CITALOPRAM HYDROBROMIDE [Suspect]
     Indication: DEPRESSION
     Dosage: 20 MG PO
     Route: 048
     Dates: start: 20061001, end: 20061018
  2. AMLODIPINE [Concomitant]
  3. ATENOLOL [Concomitant]
  4. ATORVASTATIN [Concomitant]
  5. FUROSEMIDE [Concomitant]
  6. INSULIN [Concomitant]
  7. LEVOTHYROXINE SODIUM [Concomitant]
  8. LISINOPRIL [Concomitant]
  9. METFORMIN HCL [Concomitant]
  10. QUININE [Concomitant]

REACTIONS (1)
  - IDIOPATHIC THROMBOCYTOPENIC PURPURA [None]
